FAERS Safety Report 7692087-8 (Version None)
Quarter: 2011Q3

REPORT INFORMATION
  Report Type: 
  Country: None (occurrence: None)
  Receive Date: 20110818
  Receipt Date: 20110816
  Transmission Date: 20111222
  Serious: Yes (Death)
  Sender: FDA-Public Use
  Company Number: US-B.I. PHARMACEUTICALS,INC./RIDGEFIELD-2011-BP-18578BP

PATIENT
  Sex: Female
  Weight: 75.5 kg

DRUGS (14)
  1. FERROUS SULFATE TAB [Concomitant]
  2. LANTUS [Concomitant]
  3. HUMALOG [Concomitant]
  4. PRADAXA [Suspect]
     Indication: ATRIAL FIBRILLATION
     Dosage: 300 MG
     Route: 048
     Dates: start: 20110518, end: 20110605
  5. CARVEDILOL [Concomitant]
  6. SIMVASTATIN [Concomitant]
  7. PLAVIX [Suspect]
  8. FUROSEMIDE [Concomitant]
  9. ERGO CALCITELOL [Concomitant]
  10. GABAPENTIN [Concomitant]
  11. CALCITRIOL [Concomitant]
  12. NITROSTAT [Concomitant]
  13. ALLOPURINOL [Concomitant]
  14. FOLIC ACID [Concomitant]

REACTIONS (1)
  - GASTROINTESTINAL HAEMORRHAGE [None]
